FAERS Safety Report 7932870-4 (Version None)
Quarter: 2011Q4

REPORT INFORMATION
  Report Type: 
  Country: None (occurrence: None)
  Receive Date: 20111122
  Receipt Date: 20111114
  Transmission Date: 20120403
  Serious: Yes (Hospitalization)
  Sender: FDA-Public Use
  Company Number: US-ASTELLAS-2011US007544

PATIENT
  Sex: Female

DRUGS (1)
  1. ERLOTINIB HYDROCHLORIDE [Suspect]
     Indication: BREAST CANCER
     Dosage: 150 MG, UID/QD
     Route: 048
     Dates: start: 20111104

REACTIONS (10)
  - PLEURITIC PAIN [None]
  - OFF LABEL USE [None]
  - HOSPICE CARE [None]
  - DEPRESSED LEVEL OF CONSCIOUSNESS [None]
  - HEADACHE [None]
  - ASTHENIA [None]
  - DECREASED APPETITE [None]
  - HOSPITALISATION [None]
  - FATIGUE [None]
  - DISEASE PROGRESSION [None]
